FAERS Safety Report 22391153 (Version 1)
Quarter: 2023Q2

REPORT INFORMATION
  Report Type: Spontaneous
  Country: CH (occurrence: CH)
  Receive Date: 20230601
  Receipt Date: 20230601
  Transmission Date: 20230722
  Serious: Yes (Other)
  Sender: FDA-Public Use
  Company Number: None

PATIENT
  Age: 51 Year
  Sex: Female

DRUGS (3)
  1. ENBREL [Suspect]
     Active Substance: ETANERCEPT
     Indication: Rheumatoid arthritis
     Dosage: 50 MG, WEEKLY
     Route: 058
     Dates: start: 20210420, end: 20220610
  2. ENBREL [Suspect]
     Active Substance: ETANERCEPT
     Dosage: 50 MG EVERY 6 DAYS
     Route: 058
     Dates: start: 20220610
  3. ENBREL [Suspect]
     Active Substance: ETANERCEPT
     Dosage: 50 MG, UNK (PATIENT OVERALL RECEIVED 50% OF HER DOSES)
     Route: 065
     Dates: start: 202301

REACTIONS (5)
  - Cardiac ventricular disorder [Recovering/Resolving]
  - Therapeutic product effect incomplete [Unknown]
  - Dyspnoea [Unknown]
  - Upper respiratory tract infection [Unknown]
  - Off label use [Unknown]

NARRATIVE: CASE EVENT DATE: 20221201
